FAERS Safety Report 5696295-7 (Version None)
Quarter: 2008Q2

REPORT INFORMATION
  Report Type: 
  Country: None (occurrence: None)
  Receive Date: 20080407
  Receipt Date: 20080327
  Transmission Date: 20081010
  Serious: Yes (Hospitalization)
  Sender: FDA-Public Use
  Company Number: US-ELI_LILLY_AND_COMPANY-US200803006208

PATIENT
  Sex: Female

DRUGS (2)
  1. FORTEO [Suspect]
     Indication: RESORPTION BONE INCREASED
     Dates: start: 20071211
  2. COREG [Concomitant]

REACTIONS (7)
  - BLOOD POTASSIUM DECREASED [None]
  - CARDIAC PACEMAKER INSERTION [None]
  - CARDIAC PACEMAKER MALFUNCTION [None]
  - DIARRHOEA [None]
  - FAECES DISCOLOURED [None]
  - INCISION SITE INFECTION [None]
  - VOMITING [None]
